FAERS Safety Report 4708741-3 (Version None)
Quarter: 2005Q3

REPORT INFORMATION
  Report Type: 
  Country: None (occurrence: None)
  Receive Date: 20050707
  Receipt Date: 20050608
  Transmission Date: 20060218
  Serious: Yes (Disabling)
  Sender: FDA-Public Use
  Company Number: JP-BRISTOL-MYERS SQUIBB COMPANY-12998175

PATIENT
  Age: 57 Year
  Sex: Male

DRUGS (7)
  1. BRIPLATIN [Suspect]
     Indication: METASTASES TO LIVER
     Route: 025
     Dates: start: 20050224, end: 20050603
  2. FLUOROURACIL [Suspect]
     Indication: METASTASES TO LIVER
     Route: 042
     Dates: start: 20050224, end: 20050603
  3. URSODIOL [Concomitant]
     Route: 048
     Dates: start: 20050228
  4. LENDORMIN [Concomitant]
     Route: 048
     Dates: start: 20050602
  5. UFT [Concomitant]
     Dosage: DOSING FROM 29-OCT-2004 UNTIL 21-FEB-2005 AND FROM 01-APR-2005 UNTIL 19-MAY-2005
     Route: 048
     Dates: start: 20041029, end: 20050519
  6. SOLU-CORTEF [Concomitant]
     Route: 025
     Dates: start: 20050224, end: 20050603
  7. LEUCOVORIN CALCIUM [Concomitant]
     Route: 048
     Dates: start: 20050422, end: 20050519

REACTIONS (1)
  - CEREBRAL INFARCTION [None]
